FAERS Safety Report 8829964 (Version 1)
Quarter: 2012Q4

REPORT INFORMATION
  Report Type: 
  Country: BR (occurrence: BR)
  Receive Date: 20121008
  Receipt Date: 20121008
  Transmission Date: 20130627
  Serious: Yes (Hospitalization)
  Sender: FDA-Public Use
  Company Number: BR-ASTRAZENECA-2012SE42706

PATIENT
  Age: 66 Year
  Sex: Female
  Weight: 90 kg

DRUGS (3)
  1. ATACAND [Suspect]
     Indication: HYPERTENSION
     Route: 048
     Dates: end: 201206
  2. MAREVAN [Concomitant]
     Route: 048
  3. DIOSMIN [Concomitant]
     Route: 048

REACTIONS (1)
  - Spinal artery thrombosis [Recovered/Resolved]
